FAERS Safety Report 23666882 (Version 1)
Quarter: 2024Q1

REPORT INFORMATION
  Report Type: Spontaneous
  Country: BR (occurrence: BR)
  Receive Date: 20240325
  Receipt Date: 20240325
  Transmission Date: 20240410
  Serious: Yes (Hospitalization)
  Sender: FDA-Public Use
  Company Number: BR-GLAXOSMITHKLINE-BR2022AMR151278

PATIENT

DRUGS (2)
  1. BENLYSTA [Suspect]
     Active Substance: BELIMUMAB
     Indication: Systemic lupus erythematosus
     Dosage: 120 MG
     Route: 042
     Dates: start: 20170217
  2. BENLYSTA [Suspect]
     Active Substance: BELIMUMAB
     Dosage: 600 MG (120X5 MG)
     Route: 042
     Dates: start: 20170217

REACTIONS (11)
  - Dengue fever [Recovered/Resolved]
  - Asthenia [Recovered/Resolved]
  - Pain [Recovered/Resolved]
  - Pyrexia [Recovered/Resolved]
  - Discomfort [Recovered/Resolved]
  - Chromaturia [Recovered/Resolved]
  - Ocular icterus [Recovered/Resolved]
  - Vision blurred [Recovered/Resolved]
  - Product availability issue [Unknown]
  - Product dose omission issue [Unknown]
  - Inappropriate schedule of product administration [Unknown]

NARRATIVE: CASE EVENT DATE: 20240104
